FAERS Safety Report 9390425 (Version 1)
Quarter: 2013Q3

REPORT INFORMATION
  Report Type: Spontaneous
  Country: AU (occurrence: AU)
  Receive Date: 20130709
  Receipt Date: 20130709
  Transmission Date: 20140515
  Serious: Yes (Other)
  Sender: FDA-Public Use
  Company Number: PHHY2013AU072125

PATIENT
  Age: 69 Year
  Sex: Female

DRUGS (2)
  1. ZOLEDRONIC ACID [Suspect]
  2. EVISTA [Suspect]

REACTIONS (2)
  - Osteonecrosis [Unknown]
  - Pain in jaw [Unknown]
